FAERS Safety Report 11587867 (Version 4)
Quarter: 2015Q4

REPORT INFORMATION
  Report Type: Spontaneous
  Country: US (occurrence: US)
  Receive Date: 20151001
  Receipt Date: 20151117
  Transmission Date: 20160304
  Serious: No
  Sender: FDA-Public Use
  Company Number: CHPA2015US011582

PATIENT
  Age: 64 Year
  Sex: Female

DRUGS (1)
  1. VOLTAREN [Suspect]
     Active Substance: DICLOFENAC SODIUM
     Indication: NERVE INJURY
     Dosage: SMALL AMOUNT, BID
     Route: 061
     Dates: start: 20150728, end: 201509

REACTIONS (7)
  - Sneezing [Recovering/Resolving]
  - Throat irritation [Recovered/Resolved]
  - Incorrect dose administered [Unknown]
  - Hypersensitivity [Recovering/Resolving]
  - Rhinorrhoea [Recovered/Resolved]
  - Drug ineffective for unapproved indication [Unknown]
  - Inappropriate schedule of drug administration [Unknown]

NARRATIVE: CASE EVENT DATE: 20150728
